FAERS Safety Report 8111955-6 (Version None)
Quarter: 2012Q1

REPORT INFORMATION
  Report Type: 
  Country: None (occurrence: None)
  Receive Date: 20120203
  Receipt Date: 20110824
  Transmission Date: 20120608
  Serious: No
  Sender: FDA-Public Use
  Company Number: US-GLAXOSMITHKLINE-A0942159A

PATIENT
  Age: 53 Year
  Sex: Female

DRUGS (4)
  1. NIFEDIPINE [Concomitant]
  2. ARIXTRA [Suspect]
     Indication: THROMBOSIS
     Dosage: 7.5MG PER DAY
     Route: 058
     Dates: start: 20060101
  3. CLONIDINE [Concomitant]
  4. PROTONIX [Concomitant]

REACTIONS (5)
  - INJECTION SITE HAEMORRHAGE [None]
  - BREAST HAEMATOMA [None]
  - INJECTION SITE PAIN [None]
  - IMPAIRED HEALING [None]
  - PRODUCT QUALITY ISSUE [None]
